FAERS Safety Report 16731276 (Version 2)
Quarter: 2019Q4

REPORT INFORMATION
  Report Type: Spontaneous
  Country: US (occurrence: US)
  Receive Date: 20190822
  Receipt Date: 20191223
  Transmission Date: 20200122
  Serious: Yes (Hospitalization, Other)
  Sender: FDA-Public Use
  Company Number: US-ASTRAZENECA-2019SF16980

PATIENT
  Age: 60 Year
  Sex: Male
  Weight: 90.7 kg

DRUGS (55)
  1. AMOXICILLINE [Concomitant]
     Active Substance: AMOXICILLIN
     Indication: SWELLING
  2. HYDROCHLOROTHIAZIDE. [Concomitant]
     Active Substance: HYDROCHLOROTHIAZIDE
  3. POTASSIUM CHLORIDE. [Concomitant]
     Active Substance: POTASSIUM CHLORIDE
  4. EDARBYCLOR [Concomitant]
     Active Substance: AZILSARTAN KAMEDOXOMIL\CHLORTHALIDONE
  5. MAGNESIUM [Concomitant]
     Active Substance: MAGNESIUM
  6. PRILOSEC OTC [Suspect]
     Active Substance: OMEPRAZOLE MAGNESIUM
     Indication: GASTROOESOPHAGEAL REFLUX DISEASE
     Route: 048
     Dates: start: 2015, end: 201903
  7. CENTRUM MULTIVITAMIN [Concomitant]
  8. TUMS [Concomitant]
     Active Substance: CALCIUM CARBONATE
     Dates: start: 2013, end: 2014
  9. LEVAQUIN [Concomitant]
     Active Substance: LEVOFLOXACIN
     Indication: SWELLING
  10. ZESTRIL [Concomitant]
     Active Substance: LISINOPRIL
  11. NORVASC [Concomitant]
     Active Substance: AMLODIPINE BESYLATE
  12. VERAMYST [Concomitant]
     Active Substance: FLUTICASONE FUROATE
  13. AMOXICILLIN. [Concomitant]
     Active Substance: AMOXICILLIN
  14. PROAIR HFA [Concomitant]
     Active Substance: ALBUTEROL SULFATE
  15. PRAVASTATIN. [Concomitant]
     Active Substance: PRAVASTATIN
  16. VALSARTAN AND HYDROCHLOROTHIAZIDE [Concomitant]
     Active Substance: HYDROCHLOROTHIAZIDE\VALSARTAN
  17. TRAZODONE [Concomitant]
     Active Substance: TRAZODONE HYDROCHLORIDE
  18. CELECOXIB. [Concomitant]
     Active Substance: CELECOXIB
     Indication: PAIN
  19. MELOXICAM. [Concomitant]
     Active Substance: MELOXICAM
     Indication: SWELLING
  20. ORPHENADRINE [Concomitant]
     Active Substance: ORPHENADRINE
  21. NASONEX [Concomitant]
     Active Substance: MOMETASONE FUROATE
  22. AMOXICILLINEAMOXICILLIN, CLAVULANIC [Concomitant]
  23. AMLODIPINE [Concomitant]
     Active Substance: AMLODIPINE BESYLATE
  24. AZELASTINE. [Concomitant]
     Active Substance: AZELASTINE HYDROCHLORIDE
  25. VALSARTAN. [Concomitant]
     Active Substance: VALSARTAN
     Indication: SWELLING
  26. FUROSEMIDE. [Concomitant]
     Active Substance: FUROSEMIDE
     Indication: SWELLING
  27. TORSEMIDE. [Concomitant]
     Active Substance: TORSEMIDE
     Indication: SWELLING
  28. ALLOPURINOL. [Concomitant]
     Active Substance: ALLOPURINOL
     Indication: SWELLING
  29. FUROSEMIDE. [Concomitant]
     Active Substance: FUROSEMIDE
  30. PHENTERMINE. [Concomitant]
     Active Substance: PHENTERMINE
  31. PEPTO-BISMOL [Concomitant]
     Active Substance: BISMUTH SUBSALICYLATE
     Dates: start: 2013, end: 2014
  32. CELECOXIB. [Concomitant]
     Active Substance: CELECOXIB
     Indication: SWELLING
  33. DOXYCYCLINE. [Concomitant]
     Active Substance: DOXYCYCLINE
     Indication: SWELLING
  34. LOSARTAN. [Concomitant]
     Active Substance: LOSARTAN
     Indication: SWELLING
  35. PRAVASTATIN. [Concomitant]
     Active Substance: PRAVASTATIN
     Indication: SWELLING
  36. HYDRALAZINE [Concomitant]
     Active Substance: HYDRALAZINE HYDROCHLORIDE
     Indication: SWELLING
  37. VICOPROFEN [Concomitant]
     Active Substance: HYDROCODONE BITARTRATE\IBUPROFEN
  38. ACCUPRIL [Concomitant]
     Active Substance: QUINAPRIL HYDROCHLORIDE
  39. CIPROFLOXACIN. [Concomitant]
     Active Substance: CIPROFLOXACIN
  40. DOXYCYCLINE. [Concomitant]
     Active Substance: DOXYCYCLINE
  41. BYSTOLIC [Concomitant]
     Active Substance: NEBIVOLOL HYDROCHLORIDE
  42. LABETALOL [Concomitant]
     Active Substance: LABETALOL\LABETALOL HYDROCHLORIDE
  43. CIALIS [Concomitant]
     Active Substance: TADALAFIL
  44. VIAGRA [Concomitant]
     Active Substance: SILDENAFIL CITRATE
  45. MELOXICAM. [Concomitant]
     Active Substance: MELOXICAM
  46. LABETALOL [Concomitant]
     Active Substance: LABETALOL\LABETALOL HYDROCHLORIDE
  47. LISINOPRIL. [Concomitant]
     Active Substance: LISINOPRIL
     Indication: SWELLING
  48. MICARDIS [Concomitant]
     Active Substance: TELMISARTAN
     Indication: SWELLING
  49. CEFADROXIL. [Concomitant]
     Active Substance: CEFADROXIL
  50. CLARITIN [Concomitant]
     Active Substance: LORATADINE
  51. PREDNISONE. [Concomitant]
     Active Substance: PREDNISONE
  52. FISH OIL [Concomitant]
     Active Substance: FISH OIL
  53. PRILOSEC OTC [Suspect]
     Active Substance: OMEPRAZOLE MAGNESIUM
     Indication: GASTROOESOPHAGEAL REFLUX DISEASE
     Route: 048
     Dates: start: 2015, end: 2019
  54. FEXOFENADINE [Concomitant]
     Active Substance: FEXOFENADINE HYDROCHLORIDE
  55. LASIX [Concomitant]
     Active Substance: FUROSEMIDE

REACTIONS (5)
  - End stage renal disease [Not Recovered/Not Resolved]
  - Nephrogenic anaemia [Unknown]
  - Chronic kidney disease [Not Recovered/Not Resolved]
  - Renal failure [Unknown]
  - Acute kidney injury [Unknown]

NARRATIVE: CASE EVENT DATE: 2015
